FAERS Safety Report 8923140 (Version 2)
Quarter: 2013Q1

REPORT INFORMATION
  Report Type: Spontaneous
  Country: JP (occurrence: JP)
  Receive Date: 20121123
  Receipt Date: 20130315
  Transmission Date: 20140127
  Serious: Yes (Other)
  Sender: FDA-Public Use
  Company Number: JP-ROCHE-1158633

PATIENT
  Age: 82 Year
  Sex: Male
  Weight: 56 kg

DRUGS (3)
  1. AVASTIN [Suspect]
     Indication: COLORECTAL CANCER RECURRENT
     Route: 041
     Dates: start: 20121022, end: 20121022
  2. XELODA [Suspect]
     Indication: COLORECTAL CANCER RECURRENT
     Dosage: 2 WEEKS ADMINISTRATION FOLLOWED BY 1 WEEK REST
     Route: 048
     Dates: start: 20121022
  3. ELPLAT [Concomitant]
     Indication: COLORECTAL CANCER RECURRENT
     Route: 041
     Dates: start: 20121022

REACTIONS (1)
  - Cerebral infarction [Recovering/Resolving]
